FAERS Safety Report 10716782 (Version 11)
Quarter: 2021Q4

REPORT INFORMATION
  Report Type: Report from Study
  Country: DE (occurrence: DE)
  Receive Date: 20150116
  Receipt Date: 20211123
  Transmission Date: 20220303
  Serious: Yes (Other)
  Sender: FDA-Public Use
  Company Number: PHHO2015DE000728

PATIENT
  Age: 7 Year
  Sex: Male
  Weight: 25 kg

DRUGS (5)
  1. CERITINIB [Suspect]
     Active Substance: CERITINIB
     Indication: Non-small cell lung cancer
     Dosage: 500 MG, QD
     Route: 048
     Dates: start: 20141222, end: 20150107
  2. CERITINIB [Suspect]
     Active Substance: CERITINIB
     Dosage: 430 MG/M2, UNK
     Route: 048
     Dates: start: 20150119
  3. NOVALGIN (METAMIZOLE SODIUM) [Suspect]
     Active Substance: METAMIZOLE SODIUM
     Indication: Prophylaxis
     Dosage: 250 MG, QD
     Route: 042
     Dates: start: 20150105, end: 20150107
  4. CLONIDINE [Concomitant]
     Active Substance: CLONIDINE
     Indication: Steroid therapy
     Dosage: 75 UG, QID
     Route: 048
     Dates: start: 20141224
  5. AMPHOTERICIN B [Concomitant]
     Active Substance: AMPHOTERICIN B
     Indication: Infection prophylaxis
     Dosage: 200 MG, QID
     Route: 048
     Dates: start: 20140717, end: 20150107

REACTIONS (2)
  - Amylase increased [Recovered/Resolved]
  - Lipase increased [Recovering/Resolving]

NARRATIVE: CASE EVENT DATE: 20150107
